FAERS Safety Report 7094893-X (Version None)
Quarter: 2010Q4

REPORT INFORMATION
  Report Type: 
  Country: None (occurrence: None)
  Receive Date: 20101111
  Receipt Date: 20101102
  Transmission Date: 20110411
  Serious: No
  Sender: FDA-Public Use
  Company Number: US-BIOGENIDEC-2010BI029897

PATIENT
  Sex: Male

DRUGS (2)
  1. TYSABRI [Suspect]
     Indication: MULTIPLE SCLEROSIS
     Route: 042
  2. TYSABRI [Suspect]
     Route: 042
     Dates: start: 20070517

REACTIONS (5)
  - ABASIA [None]
  - GAIT DISTURBANCE [None]
  - MOBILITY DECREASED [None]
  - OEDEMA PERIPHERAL [None]
  - SENSATION OF HEAVINESS [None]
